FAERS Safety Report 23469724 (Version 1)
Quarter: 2024Q1

REPORT INFORMATION
  Report Type: Spontaneous
  Country: GB (occurrence: GB)
  Receive Date: 20240202
  Receipt Date: 20240202
  Transmission Date: 20240410
  Serious: Yes (Disabling, Other)
  Sender: FDA-Public Use
  Company Number: None

PATIENT
  Age: 69 Year
  Sex: Male
  Weight: 68 kg

DRUGS (2)
  1. EZETIMIBE [Suspect]
     Active Substance: EZETIMIBE
     Indication: Myalgia
     Dosage: 10 DOSAGE FORM (TABLETS)
     Route: 065
     Dates: start: 20231117
  2. ATORVASTATIN [Concomitant]
     Active Substance: ATORVASTATIN
     Indication: Myalgia
     Dosage: UNK
     Route: 065
     Dates: start: 20230616

REACTIONS (1)
  - Myalgia [Not Recovered/Not Resolved]

NARRATIVE: CASE EVENT DATE: 20231201
